FAERS Safety Report 8310207-9 (Version None)
Quarter: 2012Q2

REPORT INFORMATION
  Report Type: 
  Country: None (occurrence: None)
  Receive Date: 20120425
  Receipt Date: 20120418
  Transmission Date: 20120825
  Serious: Yes (Hospitalization)
  Sender: FDA-Public Use
  Company Number: US-BAYER-2012-039317

PATIENT
  Age: 25 Year
  Sex: Female
  Weight: 115.19 kg

DRUGS (9)
  1. YASMIN [Suspect]
  2. PREVACID [Concomitant]
     Dosage: 30MG DAILY
     Route: 048
     Dates: start: 20030305
  3. WELLBUTRIN [Concomitant]
     Dosage: 150 MG, BID
     Route: 048
     Dates: start: 20030305
  4. LORTAB [Concomitant]
     Dosage: 7.5/500MG ONE EVERY 4-6 HOURS AS NEEDED
  5. ATIVAN [Concomitant]
     Indication: PANIC REACTION
  6. TYLOX [Concomitant]
     Dosage: 5MG AS NEEDED
     Dates: start: 20030305
  7. ATIVAN [Concomitant]
     Indication: ANXIETY
     Dosage: 0.5MG DAILY
     Route: 048
     Dates: start: 20030305
  8. NEURONTIN [Concomitant]
     Dosage: 800 MG, TID
     Route: 048
     Dates: start: 20030305
  9. KLONOPIN [Concomitant]
     Dosage: 0.5 MG, UNK
     Route: 048

REACTIONS (2)
  - DEEP VEIN THROMBOSIS [None]
  - PULMONARY EMBOLISM [None]
